FAERS Safety Report 4358529-0 (Version None)
Quarter: 2004Q2

REPORT INFORMATION
  Report Type: 
  Country: None (occurrence: None)
  Receive Date: 20040512
  Receipt Date: 20040430
  Transmission Date: 20050107
  Serious: Yes (Hospitalization)
  Sender: FDA-Public Use
  Company Number: 2004-DE-02406GD

PATIENT
  Age: 35 Year
  Sex: Female

DRUGS (7)
  1. METHOTREXATE [Suspect]
     Indication: CROHN'S DISEASE
     Dosage: 15 MG/WEEK, PO
     Route: 048
  2. AZATHIOPRINE [Suspect]
     Indication: CROHN'S DISEASE
  3. MESALAZINE(MESALAZINE) [Suspect]
     Indication: CROHN'S DISEASE
     Dosage: 3 G
  4. FOLIC ACID [Concomitant]
  5. ORNIDAZOLE [Concomitant]
  6. CIPROFLOXACIN [Concomitant]
  7. OMEPRAZOLE [Concomitant]

REACTIONS (8)
  - ABDOMINAL TENDERNESS [None]
  - BACK PAIN [None]
  - CROHN'S DISEASE [None]
  - DIARRHOEA HAEMORRHAGIC [None]
  - DISEASE RECURRENCE [None]
  - ODYNOPHAGIA [None]
  - OESOPHAGEAL ULCER [None]
  - PYREXIA [None]
